FAERS Safety Report 12995762 (Version 1)
Quarter: 2016Q4

REPORT INFORMATION
  Report Type: Spontaneous
  Country: JP (occurrence: JP)
  Receive Date: 20161202
  Receipt Date: 20161202
  Transmission Date: 20170207
  Serious: Yes (Life-Threatening)
  Sender: FDA-Public Use
  Company Number: JP-TEVA-715972ISR

PATIENT
  Age: 72 Year
  Sex: Female

DRUGS (5)
  1. HEPARIN [Concomitant]
     Active Substance: HEPARIN SODIUM
     Indication: CONTINUOUS HAEMODIAFILTRATION
     Route: 065
  2. VANCOMYCIN [Suspect]
     Active Substance: VANCOMYCIN
     Indication: STAPHYLOCOCCAL INFECTION
     Dosage: 1000MG ON THE FIRST DAY
     Route: 042
  3. NAFAMOSTAT [Concomitant]
     Active Substance: NAFAMOSTAT
     Indication: CONTINUOUS HAEMODIAFILTRATION
     Route: 065
  4. MEROPENEM. [Concomitant]
     Active Substance: MEROPENEM
     Route: 065
  5. VANCOMYCIN [Suspect]
     Active Substance: VANCOMYCIN
     Dosage: 500MG EVERY 24 HOURS AFTER THE SECOND DAY
     Route: 042

REACTIONS (2)
  - Thrombocytopenia [Recovered/Resolved]
  - Gastrointestinal haemorrhage [Recovered/Resolved]
